FAERS Safety Report 4833295-0 (Version None)
Quarter: 2005Q4

REPORT INFORMATION
  Report Type: 
  Country: None (occurrence: None)
  Receive Date: 20051117
  Receipt Date: 20051108
  Transmission Date: 20060501
  Serious: Yes (Hospitalization)
  Sender: FDA-Public Use
  Company Number: 2005-11-0302

PATIENT
  Age: 60 Year
  Sex: Male

DRUGS (6)
  1. TEMODAL [Suspect]
     Indication: OLIGODENDROGLIOMA
     Dosage: 200MG/M2 QD ORAL
     Route: 048
     Dates: start: 20050315
  2. CIPROXIN 500 MG [Concomitant]
  3. LAMICTAL [Concomitant]
  4. FRAGMIN [Concomitant]
  5. TEGRETOL [Concomitant]
  6. BENSYLPENCILLIN [Concomitant]

REACTIONS (1)
  - CYSTITIS HAEMORRHAGIC [None]
